FAERS Safety Report 6505170-7 (Version None)
Quarter: 2009Q4

REPORT INFORMATION
  Report Type: 
  Country: None (occurrence: None)
  Receive Date: 20091218
  Receipt Date: 20091214
  Transmission Date: 20100525
  Serious: Yes (Death, Life-Threatening)
  Sender: FDA-Public Use
  Company Number: PHHY2009GB55164

PATIENT
  Age: 16 Year
  Sex: Female

DRUGS (9)
  1. CLOZARIL [Suspect]
     Indication: POST-TRAUMATIC STRESS DISORDER
     Dosage: 300 MG, UNK
     Route: 048
     Dates: start: 20070418, end: 20070512
  2. CLOZARIL [Suspect]
     Dosage: 275 MG, UNK
     Route: 048
     Dates: start: 20070607, end: 20070703
  3. CHLORPROMAZINE [Concomitant]
     Indication: POST-TRAUMATIC STRESS DISORDER
     Dosage: 200 MG, UNK
     Dates: start: 20041001, end: 20070801
  4. CLOPIXOL [Concomitant]
     Indication: POST-TRAUMATIC STRESS DISORDER
     Dosage: 50 MG, UNK
     Route: 030
     Dates: start: 20070620
  5. LORAZEPAM [Concomitant]
     Indication: POST-TRAUMATIC STRESS DISORDER
     Dosage: 4 MG, UNK
     Dates: start: 20041001, end: 20070801
  6. MEBEVERINE [Concomitant]
     Indication: IRRITABLE BOWEL SYNDROME
     Dosage: 135 MG, 3/72
     Route: 048
     Dates: start: 20041201, end: 20070801
  7. OLANZAPINE [Concomitant]
     Indication: POST-TRAUMATIC STRESS DISORDER
     Dosage: 200 MG, UNK
     Dates: start: 20051001, end: 20070801
  8. VALPROATE SODIUM [Concomitant]
     Indication: POST-TRAUMATIC STRESS DISORDER
     Dosage: 1200 MG, UNK
     Route: 048
     Dates: start: 20051201, end: 20070801
  9. TRAZODONE HCL [Concomitant]
     Dosage: 300 MG, UNK
     Route: 048
     Dates: start: 20061201, end: 20070801

REACTIONS (10)
  - ABDOMINAL PAIN [None]
  - CARDIO-RESPIRATORY ARREST [None]
  - DEEP VEIN THROMBOSIS [None]
  - DYSPNOEA [None]
  - DYSURIA [None]
  - GENERAL PHYSICAL HEALTH DETERIORATION [None]
  - HAEMOLYTIC ANAEMIA [None]
  - PALLOR [None]
  - PLEURAL EFFUSION [None]
  - PULMONARY EMBOLISM [None]
